FAERS Safety Report 12388726 (Version 1)
Quarter: 2016Q2

REPORT INFORMATION
  Report Type: Spontaneous
  Country: CN (occurrence: CN)
  Receive Date: 20160520
  Receipt Date: 20160520
  Transmission Date: 20160815
  Serious: Yes (Other)
  Sender: FDA-Public Use
  Company Number: CN-JNJFOC-20160509876

PATIENT

DRUGS (2)
  1. PARACETAMOL [Suspect]
     Active Substance: ACETAMINOPHEN
     Indication: PRODUCT USED FOR UNKNOWN INDICATION
     Route: 065
  2. PARACETAMOL [Suspect]
     Active Substance: ACETAMINOPHEN
     Route: 065

REACTIONS (17)
  - Renal impairment [Unknown]
  - Multiple organ dysfunction syndrome [Unknown]
  - Psychotic disorder [Unknown]
  - Blood test abnormal [Unknown]
  - Hepatocellular injury [Unknown]
  - Liver disorder [Unknown]
  - Supraventricular tachycardia [Unknown]
  - Asthma [Unknown]
  - Hypoglycaemic coma [Unknown]
  - Gastric haemorrhage [Unknown]
  - Gastrointestinal haemorrhage [Unknown]
  - Oedema [Unknown]
  - Drug eruption [Unknown]
  - Haematuria [Unknown]
  - Haemolytic anaemia [Unknown]
  - Platelet count decreased [Unknown]
  - Hepatitis toxic [Unknown]
